FAERS Safety Report 6040791-X (Version None)
Quarter: 2009Q1

REPORT INFORMATION
  Report Type: 
  Country: None (occurrence: None)
  Receive Date: 20090116
  Receipt Date: 20080529
  Transmission Date: 20090719
  Serious: No
  Sender: FDA-Public Use
  Company Number: US-BRISTOL-MYERS SQUIBB COMPANY-14209126

PATIENT
  Age: 38 Year
  Sex: Female
  Weight: 83 kg

DRUGS (4)
  1. ABILIFY [Suspect]
     Indication: BIPOLAR I DISORDER
     Dates: start: 20080101
  2. ABILIFY [Suspect]
     Indication: BIPOLAR DISORDER
     Dates: start: 20080101
  3. COGENTIN [Concomitant]
  4. SEROQUEL [Concomitant]

REACTIONS (1)
  - AMNESIA [None]
